FAERS Safety Report 13145530 (Version 1)
Quarter: 2017Q1

REPORT INFORMATION
  Report Type: Spontaneous
  Country: NO (occurrence: NO)
  Receive Date: 20170124
  Receipt Date: 20170124
  Transmission Date: 20170428
  Serious: Yes (Life-Threatening, Hospitalization, Other)
  Sender: FDA-Public Use
  Company Number: NO-GLENMARK PHARMACEUTICALS-2017GMK025988

PATIENT
  Age: 40 Year
  Sex: Female

DRUGS (3)
  1. RINGER^S SOLUTION                  /03112001/ [Concomitant]
     Indication: ACUTE KIDNEY INJURY
     Dosage: UNK
     Route: 042
  2. OMEPRAZOLE. [Suspect]
     Active Substance: OMEPRAZOLE
     Indication: PRODUCT USED FOR UNKNOWN INDICATION
     Dosage: 20-40 MG, QD
     Route: 065
  3. ATORVASTATIN [Concomitant]
     Active Substance: ATORVASTATIN
     Indication: PRODUCT USED FOR UNKNOWN INDICATION
     Dosage: 20 MG, QD
     Route: 065

REACTIONS (6)
  - Seizure [Recovered/Resolved]
  - Cardiac arrest [Recovered/Resolved]
  - Hypomagnesaemia [Recovered/Resolved]
  - Loss of consciousness [Recovered/Resolved]
  - Torsade de pointes [Recovered/Resolved]
  - Cyanosis [Recovered/Resolved]
